FAERS Safety Report 7675666-3 (Version None)
Quarter: 2011Q3

REPORT INFORMATION
  Report Type: 
  Country: None (occurrence: None)
  Receive Date: 20110810
  Receipt Date: 20110803
  Transmission Date: 20111222
  Serious: Yes (Death)
  Sender: FDA-Public Use
  Company Number: US-CELGENEUS-163-21660-11080537

PATIENT
  Sex: Female

DRUGS (1)
  1. ABRAXANE [Suspect]
     Route: 041

REACTIONS (1)
  - NEOPLASM MALIGNANT [None]
